FAERS Safety Report 5514177-8 (Version None)
Quarter: 2007Q4

REPORT INFORMATION
  Report Type: 
  Country: None (occurrence: None)
  Receive Date: 20071113
  Receipt Date: 20071102
  Transmission Date: 20080405
  Serious: Yes (Death)
  Sender: FDA-Public Use
  Company Number: JP-ROCHE-431959

PATIENT
  Age: 57 Year
  Sex: Female

DRUGS (11)
  1. TAMIFLU [Suspect]
     Route: 048
     Dates: start: 20060110, end: 20060110
  2. TAMIFLU [Suspect]
     Route: 048
     Dates: start: 20060111, end: 20060111
  3. SODIUM RISEDRONATE [Concomitant]
     Dosage: CLARIFIED AS 'BENET (SODIUM RISEDRONATE HYDRATE)'
     Route: 048
     Dates: start: 20050207
  4. SAWATENE [Concomitant]
     Dosage: FORMULATION REPORTED AS 'ORAL'
     Route: 048
     Dates: start: 20050302
  5. MAGNESIUM OXIDE [Concomitant]
     Dosage: CLARIFIED AS 'MAGLAX'
     Route: 048
     Dates: start: 20050218
  6. INDOMETHACIN [Concomitant]
     Dosage: DRUG: MIKAMETAN. NOTE: DOSE ADJUSTED
     Route: 061
     Dates: start: 20051226
  7. LYSOZYME HYDROCHLORIDE [Concomitant]
     Dosage: DRUG NAME REPORTED AS LYZYME
     Route: 048
     Dates: start: 20050302
  8. BIO-THREE [Concomitant]
     Dosage: REPORTED AS ORAL FORMULATION
     Route: 048
     Dates: start: 20050302
  9. MEXILETINE HCL [Concomitant]
     Dosage: DRUG NAME REPORTED AS MELDEST
     Route: 048
     Dates: start: 20050523
  10. GENTAMICIN SULFATE [Concomitant]
     Dosage: DRUG NAME: ELTACIN. DOSE ADJUSTED
     Route: 061
     Dates: start: 20060110
  11. FLORID [Concomitant]
     Dosage: DRUG NAME REPORTED AS FLORID-D, NOTE: DOSE ADJUSTED
     Route: 061
     Dates: start: 20050716

REACTIONS (2)
  - DYSTROPHIA MYOTONICA [None]
  - INFLUENZA [None]
